FAERS Safety Report 15708453 (Version 1)
Quarter: 2018Q4

REPORT INFORMATION
  Report Type: Spontaneous
  Country: US (occurrence: US)
  Receive Date: 20181128
  Receipt Date: 20181128
  Transmission Date: 20190205
  Serious: No
  Sender: FDA-Public Use
  Company Number: None

PATIENT
  Age: 46 Year
  Sex: Male

DRUGS (1)
  1. JULUCA [Suspect]
     Active Substance: DOLUTEGRAVIR SODIUM\RILPIVIRINE HYDROCHLORIDE
     Dates: start: 201810, end: 201811

REACTIONS (3)
  - Weight increased [None]
  - Abdominal pain upper [None]
  - Flatulence [None]

NARRATIVE: CASE EVENT DATE: 20181120
